FAERS Safety Report 8959874 (Version 1)
Quarter: 2012Q4

REPORT INFORMATION
  Report Type: 
  Country: US (occurrence: US)
  Receive Date: 20121212
  Receipt Date: 20121212
  Transmission Date: 20130627
  Serious: No
  Sender: FDA-Public Use
  Company Number: US-009507513-1212USA000080

PATIENT
  Sex: Female

DRUGS (1)
  1. IMPLANON [Suspect]
     Indication: PROPHYLAXIS
     Dosage: UNK
     Route: 059
     Dates: start: 201109, end: 20121129

REACTIONS (1)
  - Medical device complication [Unknown]
